FAERS Safety Report 17291436 (Version 1)
Quarter: 2020Q1

REPORT INFORMATION
  Report Type: Spontaneous
  Country: US (occurrence: US)
  Receive Date: 20200117
  Receipt Date: 20200117
  Transmission Date: 20200409
  Serious: No
  Sender: FDA-Public Use
  Company Number: None

PATIENT
  Age: 44 Year
  Sex: Female
  Weight: 84 kg

DRUGS (1)
  1. BUPIVICAINE IN DEXTROSE 8.25% [Suspect]
     Active Substance: BUPIVACAINE
     Indication: ANAESTHESIA
     Dosage: ?          OTHER FREQUENCY:ONCE PRIOR TO SURG;?
     Route: 039
     Dates: start: 20200115, end: 20200115

REACTIONS (1)
  - Therapeutic response decreased [None]

NARRATIVE: CASE EVENT DATE: 20200115
